FAERS Safety Report 18933294 (Version 1)
Quarter: 2021Q1

REPORT INFORMATION
  Report Type: Spontaneous
  Country: US (occurrence: US)
  Receive Date: 20210224
  Receipt Date: 20210224
  Transmission Date: 20210420
  Serious: Yes (Disabling, Other)
  Sender: FDA-Public Use
  Company Number: None

PATIENT
  Age: 41 Year
  Sex: Female
  Weight: 178 kg

DRUGS (2)
  1. CLOBETASOL OINTMENT [Concomitant]
     Active Substance: CLOBETASOL
  2. PREDNISONE. [Suspect]
     Active Substance: PREDNISONE

REACTIONS (23)
  - Tooth loss [None]
  - Asthenia [None]
  - Fibromyalgia [None]
  - Pruritus [None]
  - Dizziness [None]
  - Pain [None]
  - Nervousness [None]
  - Muscle spasms [None]
  - Visual impairment [None]
  - Increased appetite [None]
  - Hyperhidrosis [None]
  - Bone pain [None]
  - Weight increased [None]
  - Immune system disorder [None]
  - Gastric disorder [None]
  - Insomnia [None]
  - Myalgia [None]
  - Palpitations [None]
  - Abdominal pain [None]
  - Arthralgia [None]
  - Mood swings [None]
  - Dyspnoea [None]
  - Depression [None]
